FAERS Safety Report 7750140-4 (Version None)
Quarter: 2011Q3

REPORT INFORMATION
  Report Type: 
  Country: None (occurrence: None)
  Receive Date: 20110912
  Receipt Date: 20110829
  Transmission Date: 20111222
  Serious: Yes (Hospitalization)
  Sender: FDA-Public Use
  Company Number: TPG2011A02529

PATIENT
  Age: 68 Year
  Sex: Male

DRUGS (1)
  1. ACTOS [Suspect]
     Route: 048
     Dates: start: 20110719

REACTIONS (1)
  - BLADDER CANCER [None]
